FAERS Safety Report 19392946 (Version 1)
Quarter: 2021Q2

REPORT INFORMATION
  Report Type: Spontaneous
  Country: JP (occurrence: JP)
  Receive Date: 20210609
  Receipt Date: 20210609
  Transmission Date: 20210717
  Serious: Yes (Hospitalization, Other)
  Sender: FDA-Public Use
  Company Number: JP-AUROBINDO-AUR-APL-2021-023700

PATIENT
  Age: 16 Year
  Sex: Female

DRUGS (14)
  1. BUSULFEX [Suspect]
     Active Substance: BUSULFAN
     Indication: AUTOLOGOUS HAEMATOPOIETIC STEM CELL TRANSPLANT
     Dosage: 60 MILLIGRAM
     Route: 041
  2. ENDOXAN [Suspect]
     Active Substance: CYCLOPHOSPHAMIDE
     Indication: OFF LABEL USE
     Dosage: UNK
     Route: 065
  3. MELPHALAN. [Concomitant]
     Active Substance: MELPHALAN
     Indication: AUTOLOGOUS HAEMATOPOIETIC STEM CELL TRANSPLANT
     Dosage: UNK
     Route: 065
  4. THIOTEPA. [Concomitant]
     Active Substance: THIOTEPA
     Indication: AUTOLOGOUS HAEMATOPOIETIC STEM CELL TRANSPLANT
     Dosage: UNK
     Route: 065
  5. VINCRISTINE SULFATE. [Suspect]
     Active Substance: VINCRISTINE SULFATE
     Indication: SARCOMA
     Dosage: UNK, VDC?IE REGIMEN
     Route: 065
  6. BUSULFAN. [Suspect]
     Active Substance: BUSULFAN
     Indication: SARCOMA
     Dosage: UNK
     Route: 065
  7. CELLTOP [Suspect]
     Active Substance: ETOPOSIDE
     Indication: SARCOMA
     Dosage: VDC?IE THERAPY
     Route: 065
  8. CELLTOP [Suspect]
     Active Substance: ETOPOSIDE
     Indication: OFF LABEL USE
     Dosage: UNK
     Route: 065
  9. ENDOXAN [Suspect]
     Active Substance: CYCLOPHOSPHAMIDE
     Indication: SARCOMA
     Dosage: UNK, VDC?IE REGIMEN
     Route: 065
  10. IFEX [Suspect]
     Active Substance: IFOSFAMIDE
     Indication: OFF LABEL USE
  11. MELPHALAN. [Suspect]
     Active Substance: MELPHALAN
     Indication: SARCOMA
     Dosage: UNK
     Route: 065
  12. THIOTEPA. [Suspect]
     Active Substance: THIOTEPA
     Indication: SARCOMA
     Dosage: UNK
     Route: 065
  13. DOXORUBICIN HYDROCHLORIDE. [Suspect]
     Active Substance: DOXORUBICIN HYDROCHLORIDE
     Indication: SARCOMA
     Dosage: UNK, VDC?IE REGIMEN
     Route: 065
  14. IFEX [Suspect]
     Active Substance: IFOSFAMIDE
     Indication: SARCOMA
     Dosage: VDC?IE REGIMEN
     Route: 065

REACTIONS (5)
  - Off label use [Unknown]
  - Thyroid cancer [Recovering/Resolving]
  - Product use in unapproved indication [Unknown]
  - Product use issue [Unknown]
  - Metastasis [Recovering/Resolving]
